FAERS Safety Report 7645482-7 (Version None)
Quarter: 2011Q3

REPORT INFORMATION
  Report Type: 
  Country: None (occurrence: None)
  Receive Date: 20110729
  Receipt Date: 20110725
  Transmission Date: 20111222
  Serious: Yes (Hospitalization)
  Sender: FDA-Public Use
  Company Number: IT-BAYER-2011-059711

PATIENT
  Age: 74 Year
  Sex: Male

DRUGS (3)
  1. ENALAPRIL MALEATE [Concomitant]
     Indication: HYPERTENSION
  2. ADALAT [Concomitant]
  3. ULTRAVIST 150 [Suspect]
     Indication: COMPUTERISED TOMOGRAM
     Dosage: 100 ML, ONCE
     Route: 042
     Dates: start: 20110704, end: 20110704

REACTIONS (4)
  - BLOOD CREATININE INCREASED [None]
  - BURNING SENSATION [None]
  - URTICARIA [None]
  - VASOCONSTRICTION [None]
